APPROVED DRUG PRODUCT: NALTREXONE HYDROCHLORIDE
Active Ingredient: NALTREXONE HYDROCHLORIDE
Strength: 50MG
Dosage Form/Route: TABLET;ORAL
Application: A090356 | Product #001 | TE Code: AB
Applicant: SUN PHARMACEUTICAL INDUSTRIES LTD
Approved: Feb 24, 2012 | RLD: No | RS: No | Type: RX